FAERS Safety Report 8662881 (Version 2)
Quarter: 2012Q4

REPORT INFORMATION
  Report Type: 
  Country: DK (occurrence: CA)
  Receive Date: 20120712
  Receipt Date: 20120918
  Transmission Date: 20130627
  Serious: Yes (Life-Threatening, Hospitalization)
  Sender: FDA-Public Use
  Company Number: CA-FRI-1000036965

PATIENT
  Age: 58 Year
  Sex: Male
  Weight: 82 kg

DRUGS (9)
  1. CELEXA [Suspect]
     Indication: DEPRESSION
     Dosage: 50 mg
     Route: 048
     Dates: start: 20080716, end: 201003
  2. CELEXA [Suspect]
     Indication: ANXIETY
  3. CELEXA [Suspect]
     Indication: DEPRESSION
     Dosage: 60 mg
     Route: 048
     Dates: start: 201003, end: 20101208
  4. CELEXA [Suspect]
     Indication: ANXIETY
  5. SEROQUEL [Suspect]
     Indication: DEPRESSION
     Dosage: 50 mg
     Dates: start: 20090109
  6. SEROQUEL [Suspect]
     Indication: ANXIETY
     Dosage: 50 mg
  7. SEROQUEL [Suspect]
     Dosage: 75 mg
     Dates: end: 201003
  8. SEROQUEL [Suspect]
     Indication: DEPRESSION
     Dosage: 100 mg
     Route: 048
     Dates: start: 201003, end: 20101208
  9. SEROQUEL [Suspect]
     Indication: ANXIETY

REACTIONS (5)
  - Torsade de pointes [Recovered/Resolved]
  - Cardio-respiratory arrest [Recovered/Resolved]
  - Blood creatine phosphokinase increased [Recovered/Resolved]
  - Troponin increased [Recovered/Resolved]
  - Prescribed overdose [Recovered/Resolved]
